FAERS Safety Report 6371235-6 (Version None)
Quarter: 2009Q3

REPORT INFORMATION
  Report Type: 
  Country: None (occurrence: None)
  Receive Date: 20090923
  Receipt Date: 20070725
  Transmission Date: 20100115
  Serious: No
  Sender: FDA-Public Use
  Company Number: US-ASTRAZENECA-2007UW02095

PATIENT
  Age: 572 Month
  Sex: Male
  Weight: 96.6 kg

DRUGS (14)
  1. SEROQUEL [Suspect]
     Dosage: 100-300 MG
     Route: 048
     Dates: start: 20020101
  2. NABUMETONE [Concomitant]
     Route: 048
     Dates: start: 20070226
  3. PIROXICAM [Concomitant]
     Route: 048
     Dates: start: 20061229
  4. CILOSTAZOL [Concomitant]
     Route: 048
     Dates: start: 20070418
  5. PLAVIX [Concomitant]
     Route: 048
     Dates: start: 20041213
  6. LISINOPRIL [Concomitant]
     Dosage: 10-20 MG
     Route: 048
     Dates: start: 20040228
  7. NAPROXEN [Concomitant]
     Route: 048
     Dates: start: 20041213
  8. LIPITOR [Concomitant]
     Dosage: 10-20 MG
     Route: 048
     Dates: start: 20041113
  9. GLUCOPHAGE [Concomitant]
     Indication: TYPE 2 DIABETES MELLITUS
     Route: 048
     Dates: start: 20040228
  10. ASPIRIN [Concomitant]
     Route: 048
     Dates: start: 19970409
  11. ATENOLOL [Concomitant]
     Dosage: 50-100 MG
     Route: 048
     Dates: start: 20030731
  12. LORAZEPAM [Concomitant]
     Route: 048
     Dates: start: 20071106
  13. SULINDAC [Concomitant]
     Route: 048
     Dates: start: 20070220
  14. EFFEXOR [Concomitant]
     Dosage: 75-100 MG
     Dates: start: 20030129

REACTIONS (4)
  - ARTHRITIS [None]
  - INJURY [None]
  - RHEUMATOID ARTHRITIS [None]
  - TYPE 2 DIABETES MELLITUS [None]
